FAERS Safety Report 4504485-1 (Version None)
Quarter: 2004Q4

REPORT INFORMATION
  Report Type: 
  Country: None (occurrence: None)
  Receive Date: 20041117
  Receipt Date: 20041117
  Transmission Date: 20050328
  Serious: No
  Sender: FDA-Public Use
  Company Number: None

PATIENT

DRUGS (1)
  1. PROCARDIA [Suspect]
     Dates: end: 20040815

REACTIONS (4)
  - ARTHROPATHY [None]
  - GINGIVITIS [None]
  - OEDEMA PERIPHERAL [None]
  - TOOTH LOSS [None]
